FAERS Safety Report 8075773-X (Version None)
Quarter: 2012Q1

REPORT INFORMATION
  Report Type: 
  Country: None (occurrence: None)
  Receive Date: 20120125
  Receipt Date: 20120125
  Transmission Date: 20120608
  Serious: Yes (Hospitalization)
  Sender: FDA-Public Use
  Company Number: None

PATIENT
  Sex: Female

DRUGS (2)
  1. RIBAVIRIN [Suspect]
     Dosage: 600MG PO BID
     Route: 048
     Dates: start: 20111103, end: 20120113
  2. PEGASYS [Suspect]
     Dosage: 180MCG SQ QWEEK
     Dates: start: 20111103, end: 20120113

REACTIONS (1)
  - RENAL FAILURE ACUTE [None]
